FAERS Safety Report 13460839 (Version 1)
Quarter: 2017Q2

REPORT INFORMATION
  Report Type: Spontaneous
  Country: US (occurrence: US)
  Receive Date: 20170420
  Receipt Date: 20170420
  Transmission Date: 20170830
  Serious: Yes (Other)
  Sender: FDA-Public Use
  Company Number: US-BEH-2017079577

PATIENT
  Age: 70 Year
  Sex: Female
  Weight: 104.31 kg

DRUGS (56)
  1. HIZENTRA [Suspect]
     Active Substance: HUMAN IMMUNOGLOBULIN G
     Indication: IMMUNODEFICIENCY COMMON VARIABLE
     Dosage: 20 G, QW
     Route: 058
     Dates: start: 20100517
  2. NEXIUM [Concomitant]
     Active Substance: ESOMEPRAZOLE MAGNESIUM
  3. BOOST [Concomitant]
     Active Substance: DIETARY SUPPLEMENT
  4. NYSTATIN. [Concomitant]
     Active Substance: NYSTATIN
  5. GLIPIZIDE XL [Concomitant]
     Active Substance: GLIPIZIDE
  6. VITAMINS WITH MINERALS [Concomitant]
     Active Substance: MINERALS\VITAMINS
  7. B-50 COMPLEX                       /02182801/ [Concomitant]
  8. FLUCONAZOLE. [Concomitant]
     Active Substance: FLUCONAZOLE
  9. OXYGEN. [Concomitant]
     Active Substance: OXYGEN
  10. TRIAZOLAM. [Concomitant]
     Active Substance: TRIAZOLAM
  11. ZOLPIDEM [Concomitant]
     Active Substance: ZOLPIDEM\ZOLPIDEM TARTRATE
  12. XALATAN [Concomitant]
     Active Substance: LATANOPROST
  13. COMBIVENT [Concomitant]
     Active Substance: ALBUTEROL SULFATE\IPRATROPIUM BROMIDE
  14. MUCINEX [Concomitant]
     Active Substance: GUAIFENESIN
  15. LOPERAMIDE [Concomitant]
     Active Substance: LOPERAMIDE
  16. EPIPEN [Concomitant]
     Active Substance: EPINEPHRINE
  17. ALDACTONE [Concomitant]
     Active Substance: SPIRONOLACTONE
  18. ESTER-C                            /00008001/ [Concomitant]
     Active Substance: ASCORBIC ACID
  19. ULTRAM ER [Concomitant]
     Active Substance: TRAMADOL HYDROCHLORIDE
  20. PROMETHAZINE - CODEINE             /01129901/ [Concomitant]
  21. HUMALOG [Concomitant]
     Active Substance: INSULIN LISPRO
  22. CALCIUM 600 + D [Concomitant]
     Active Substance: CALCIUM\VITAMIN D
  23. SINGULAIR [Concomitant]
     Active Substance: MONTELUKAST SODIUM
  24. HIZENTRA [Suspect]
     Active Substance: HUMAN IMMUNOGLOBULIN G
     Dosage: UNK
     Route: 058
     Dates: start: 20170408
  25. STEROID ANTIBACTERIALS [Concomitant]
     Active Substance: UNSPECIFIED INGREDIENT
  26. DIPHENHYDRAMINE. [Concomitant]
     Active Substance: DIPHENHYDRAMINE
  27. IBUPROFEN. [Concomitant]
     Active Substance: IBUPROFEN
  28. HYDROCODONE BITARTRATE AND ACETAMINOPHEN [Concomitant]
     Active Substance: ACETAMINOPHEN\HYDROCODONE BITARTRATE
  29. CLONIDINE. [Concomitant]
     Active Substance: CLONIDINE
  30. BENADRYL [Concomitant]
     Active Substance: DIPHENHYDRAMINE HYDROCHLORIDE
  31. HIZENTRA [Suspect]
     Active Substance: HUMAN IMMUNOGLOBULIN G
     Dosage: UNK
     Route: 058
  32. LIDOCAINE. [Concomitant]
     Active Substance: LIDOCAINE
  33. IRON [Concomitant]
     Active Substance: IRON
  34. SILVADENE [Concomitant]
     Active Substance: SILVER SULFADIAZINE
  35. HYDROCHLOROTHIAZIDE. [Concomitant]
     Active Substance: HYDROCHLOROTHIAZIDE
  36. PULMICORT TURBUHALER [Concomitant]
     Active Substance: BUDESONIDE
  37. CLARITIN [Concomitant]
     Active Substance: LORATADINE
  38. CARAFATE [Concomitant]
     Active Substance: SUCRALFATE
  39. LOSARTAN. [Concomitant]
     Active Substance: LOSARTAN
  40. DUONEB [Concomitant]
     Active Substance: ALBUTEROL SULFATE\IPRATROPIUM BROMIDE
  41. NORVASC [Concomitant]
     Active Substance: AMLODIPINE BESYLATE
  42. TESSALON [Concomitant]
     Active Substance: BENZONATATE
  43. MECLIZINE [Concomitant]
     Active Substance: MECLIZINE HYDROCHLORIDE
  44. ALBUTEROL SULFATE. [Concomitant]
     Active Substance: ALBUTEROL SULFATE
  45. PROCTOFOAM                         /00622802/ [Concomitant]
  46. ELIQUIS [Concomitant]
     Active Substance: APIXABAN
  47. FLOVENT [Concomitant]
     Active Substance: FLUTICASONE PROPIONATE
  48. XOPENEX [Concomitant]
     Active Substance: LEVALBUTEROL HYDROCHLORIDE
  49. VITAMIN D                          /00107901/ [Concomitant]
     Active Substance: ERGOCALCIFEROL
  50. ASPIRIN. [Concomitant]
     Active Substance: ASPIRIN
  51. AMOXICILLIN. [Concomitant]
     Active Substance: AMOXICILLIN
  52. NASONEX [Concomitant]
     Active Substance: MOMETASONE FUROATE
  53. FLUOXETINE [Concomitant]
     Active Substance: FLUOXETINE HYDROCHLORIDE
  54. ATIVAN [Concomitant]
     Active Substance: LORAZEPAM
  55. FISH OIL [Concomitant]
     Active Substance: FISH OIL
  56. MAGNESIUM [Concomitant]
     Active Substance: MAGNESIUM

REACTIONS (3)
  - Atrial fibrillation [Unknown]
  - Atypical pneumonia [Unknown]
  - Cardiac arrest [Unknown]

NARRATIVE: CASE EVENT DATE: 20170410
